FAERS Safety Report 26142922 (Version 1)
Quarter: 2025Q4

REPORT INFORMATION
  Report Type: Spontaneous
  Country: US (occurrence: US)
  Receive Date: 20251211
  Receipt Date: 20251211
  Transmission Date: 20260118
  Serious: No
  Sender: ABBVIE
  Company Number: US-ABBVIE-6583245

PATIENT
  Age: 68 Year
  Sex: Female

DRUGS (1)
  1. UPADACITINIB [Suspect]
     Active Substance: UPADACITINIB
     Indication: Psoriatic arthropathy
     Route: 048

REACTIONS (5)
  - Off label use [Unknown]
  - Dysphonia [Unknown]
  - Mobility decreased [Unknown]
  - Therapeutic product effect incomplete [Unknown]
  - Arthralgia [Unknown]
